FAERS Safety Report 12460262 (Version 1)
Quarter: 2016Q2

REPORT INFORMATION
  Report Type: Report from Study
  Country: BR (occurrence: BR)
  Receive Date: 20160613
  Receipt Date: 20160613
  Transmission Date: 20160815
  Serious: Yes (Hospitalization, Other)
  Sender: FDA-Public Use
  Company Number: BR-ABBVIE-16K-020-1645399-00

PATIENT
  Sex: Male
  Weight: 76 kg

DRUGS (5)
  1. AZATHIOPRINE. [Concomitant]
     Active Substance: AZATHIOPRINE
     Indication: PRODUCT USED FOR UNKNOWN INDICATION
  2. HUMIRA [Suspect]
     Active Substance: ADALIMUMAB
     Indication: CROHN^S DISEASE
     Dosage: LOADING DOSE
     Route: 058
     Dates: start: 20160128, end: 20160128
  3. HUMIRA [Suspect]
     Active Substance: ADALIMUMAB
     Dosage: LOADING DOSE
     Route: 058
     Dates: start: 2016, end: 2016
  4. HUMIRA [Suspect]
     Active Substance: ADALIMUMAB
     Route: 058
     Dates: start: 2016
  5. AZATHIOPRINE. [Concomitant]
     Active Substance: AZATHIOPRINE

REACTIONS (13)
  - Gastrointestinal infection [Recovered/Resolved]
  - Exostosis [Not Recovered/Not Resolved]
  - Gallbladder disorder [Unknown]
  - Pancreatitis [Recovered/Resolved]
  - Diarrhoea [Recovered/Resolved]
  - Weight decreased [Recovering/Resolving]
  - Pain in extremity [Not Recovered/Not Resolved]
  - Inflammation [Not Recovered/Not Resolved]
  - Computerised tomogram abnormal [Not Recovered/Not Resolved]
  - Seizure [Recovered/Resolved]
  - Pain [Recovered/Resolved]
  - Dengue fever [Unknown]
  - Feeling cold [Recovered/Resolved]

NARRATIVE: CASE EVENT DATE: 2016
